FAERS Safety Report 7440740-3 (Version None)
Quarter: 2011Q2

REPORT INFORMATION
  Report Type: 
  Country: None (occurrence: None)
  Receive Date: 20110427
  Receipt Date: 20110415
  Transmission Date: 20111010
  Serious: Yes (Other)
  Sender: FDA-Public Use
  Company Number: US-PURDUE-USA-2011-0062806

PATIENT
  Age: 54 Year
  Sex: Female
  Weight: 118.82 kg

DRUGS (8)
  1. OXYCONTIN [Suspect]
     Dosage: 30 MG, BID
     Dates: start: 20040101
  2. UNISOM                             /00000402/ [Concomitant]
     Indication: INSOMNIA
     Dosage: 25 MG, NOCTE
  3. ZANTAC [Concomitant]
     Indication: DYSPEPSIA
     Dosage: UNK, PRN
  4. OXYCONTIN [Suspect]
     Dosage: 50 MG, TID
     Dates: start: 20041109
  5. WARFARIN [Concomitant]
     Indication: PRODUCT USED FOR UNKNOWN INDICATION
     Dosage: UNK, SEE TEXT
  6. STOOL SOFTENER [Concomitant]
     Indication: CONSTIPATION
     Dosage: UNK, PRN
  7. OXYCONTIN [Suspect]
     Indication: ARTHRALGIA
     Dosage: 80 MG, TID
     Dates: start: 20050510
  8. KLONOPIN [Concomitant]
     Indication: PRODUCT USED FOR UNKNOWN INDICATION
     Dosage: 2 MG, TID
     Dates: start: 19820101

REACTIONS (1)
  - DEEP VEIN THROMBOSIS [None]
